FAERS Safety Report 5086753-0 (Version None)
Quarter: 2006Q3

REPORT INFORMATION
  Report Type: 
  Country: None (occurrence: None)
  Receive Date: 20060823
  Receipt Date: 20060814
  Transmission Date: 20061208
  Serious: Yes (Hospitalization)
  Sender: FDA-Public Use
  Company Number: EMADSS2001001730

PATIENT
  Age: 28 Year
  Sex: Female

DRUGS (35)
  1. RISPERIDONE [Suspect]
     Route: 048
  2. RISPERIDONE [Suspect]
     Route: 048
  3. RISPERIDONE [Suspect]
     Route: 048
  4. RISPERIDONE [Suspect]
     Route: 048
  5. RISPERIDONE [Suspect]
     Route: 048
  6. RISPERIDONE [Suspect]
     Route: 048
  7. RISPERIDONE [Suspect]
     Route: 048
  8. RISPERIDONE [Suspect]
     Route: 048
  9. RISPERIDONE [Suspect]
     Indication: DRUG USE FOR UNKNOWN INDICATION
     Route: 048
  10. TAXILAN [Suspect]
     Route: 048
     Dates: start: 20000629, end: 20000828
  11. TAXILAN [Suspect]
     Route: 048
     Dates: start: 20000629, end: 20000828
  12. TAXILAN [Suspect]
     Route: 048
     Dates: start: 20000629, end: 20000828
  13. TAXILAN [Suspect]
     Route: 048
     Dates: start: 20000629, end: 20000828
  14. TAXILAN [Suspect]
     Route: 048
     Dates: start: 20000629, end: 20000828
  15. TAXILAN [Suspect]
     Route: 048
     Dates: start: 20000629, end: 20000828
  16. TAXILAN [Suspect]
     Indication: DRUG USE FOR UNKNOWN INDICATION
     Route: 048
     Dates: start: 20000629, end: 20000828
  17. MIRTAZAPINE [Suspect]
     Route: 048
     Dates: start: 20000515, end: 20000828
  18. MIRTAZAPINE [Suspect]
     Indication: DRUG USE FOR UNKNOWN INDICATION
     Route: 048
     Dates: start: 20000515, end: 20000828
  19. NEUROCIL [Suspect]
     Route: 048
  20. NEUROCIL [Suspect]
     Route: 048
  21. NEUROCIL [Suspect]
     Route: 048
  22. NEUROCIL [Suspect]
     Route: 048
  23. NEUROCIL [Suspect]
     Route: 048
  24. NEUROCIL [Suspect]
     Indication: DRUG USE FOR UNKNOWN INDICATION
     Route: 048
  25. VALPROAT SODIUM [Concomitant]
     Route: 048
     Dates: start: 20000523
  26. VALPROAT SODIUM [Concomitant]
     Route: 048
     Dates: start: 20000523
  27. VALPROAT SODIUM [Concomitant]
     Route: 048
     Dates: start: 20000523
  28. VALPROAT SODIUM [Concomitant]
     Indication: DRUG USE FOR UNKNOWN INDICATION
     Route: 048
     Dates: start: 20000523
  29. FLURACEPAM [Concomitant]
     Route: 048
     Dates: start: 20000713
  30. FLURACEPAM [Concomitant]
     Route: 048
     Dates: start: 20000713
  31. FLURACEPAM [Concomitant]
     Route: 048
     Dates: start: 20000713
  32. FLURACEPAM [Concomitant]
     Route: 048
     Dates: start: 20000713
  33. FLURACEPAM [Concomitant]
     Route: 048
     Dates: start: 20000713
  34. FLURACEPAM [Concomitant]
     Indication: DRUG USE FOR UNKNOWN INDICATION
     Route: 048
     Dates: start: 20000713
  35. TRANXILLIUM [Concomitant]
     Indication: DRUG USE FOR UNKNOWN INDICATION
     Route: 065

REACTIONS (1)
  - NEUTROPENIA [None]
